FAERS Safety Report 6041107-5 (Version None)
Quarter: 2009Q1

REPORT INFORMATION
  Report Type: 
  Country: None (occurrence: None)
  Receive Date: 20090116
  Receipt Date: 20080922
  Transmission Date: 20090719
  Serious: No
  Sender: FDA-Public Use
  Company Number: US-BRISTOL-MYERS SQUIBB COMPANY-14312508

PATIENT
  Age: 6 Year
  Sex: Male

DRUGS (4)
  1. ABILIFY [Suspect]
     Indication: AFFECTIVE DISORDER
     Dosage: 1/2 TAB TITRATING TO 2MG.
     Route: 048
     Dates: start: 20080715, end: 20080725
  2. ABILIFY [Suspect]
     Indication: AUTISM SPECTRUM DISORDER
     Dosage: 1/2 TAB TITRATING TO 2MG.
     Route: 048
     Dates: start: 20080715, end: 20080725
  3. ZYPREXA [Suspect]
  4. DEXEDRINE [Concomitant]
     Dosage: DURATION-MORE THAN 6 MONTHS

REACTIONS (1)
  - POLLAKIURIA [None]
